FAERS Safety Report 15860478 (Version 2)
Quarter: 2019Q1

REPORT INFORMATION
  Report Type: Report from Study
  Country: None (occurrence: AR)
  Receive Date: 20190123
  Receipt Date: 20190215
  Transmission Date: 20190417
  Serious: Yes (Other)
  Sender: FDA-Public Use
  Company Number: AR-ABBVIE-19K-007-2635743-00

PATIENT
  Age: 44 Year
  Sex: Female

DRUGS (2)
  1. ARTRAIT [Concomitant]
     Active Substance: METHOTREXATE SODIUM
     Indication: RHEUMATOID ARTHRITIS
  2. HUMIRA [Suspect]
     Active Substance: ADALIMUMAB
     Indication: RHEUMATOID ARTHRITIS
     Route: 058
     Dates: start: 20170913, end: 2018

REACTIONS (3)
  - Meniscus injury [Unknown]
  - Musculoskeletal discomfort [Unknown]
  - Procedural pain [Unknown]

NARRATIVE: CASE EVENT DATE: 201804
